FAERS Safety Report 5793135-2 (Version None)
Quarter: 2008Q2

REPORT INFORMATION
  Report Type: 
  Country: None (occurrence: None)
  Receive Date: 20080627
  Receipt Date: 20080408
  Transmission Date: 20081010
  Serious: No
  Sender: FDA-Public Use
  Company Number: A0721641A

PATIENT
  Age: 60 Year
  Sex: Female

DRUGS (3)
  1. FLOVENT [Suspect]
     Indication: ASTHMA
     Route: 055
     Dates: start: 20080201
  2. PREVACID [Concomitant]
  3. ALBUTEROL [Concomitant]

REACTIONS (1)
  - DERMATITIS [None]
